FAERS Safety Report 15554879 (Version 1)
Quarter: 2018Q4

REPORT INFORMATION
  Report Type: Spontaneous
  Country: US (occurrence: US)
  Receive Date: 20181022
  Receipt Date: 20181022
  Transmission Date: 20190205
  Serious: No
  Sender: FDA-Public Use
  Company Number: None

PATIENT
  Age: 81 Year
  Sex: Female

DRUGS (1)
  1. ALENDRONATE SODIUM 70 MG TABLET TEVA PHARMACEUTICALS USA [Suspect]
     Active Substance: ALENDRONATE SODIUM
     Indication: SENILE OSTEOPOROSIS
     Dosage: ?          OTHER DOSE:1 70 MG TABLET;?
     Route: 048
     Dates: start: 201610

REACTIONS (1)
  - Bone pain [None]
